FAERS Safety Report 7270620-8 (Version None)
Quarter: 2011Q1

REPORT INFORMATION
  Report Type: 
  Country: None (occurrence: None)
  Receive Date: 20110202
  Receipt Date: 20110128
  Transmission Date: 20110831
  Serious: Yes (Hospitalization)
  Sender: FDA-Public Use
  Company Number: A0886567A

PATIENT
  Age: 51 Year
  Sex: Male

DRUGS (1)
  1. AVANDIA [Suspect]
     Indication: DIABETES MELLITUS
     Route: 048
     Dates: start: 20030724, end: 20080630

REACTIONS (8)
  - PLEURAL EFFUSION [None]
  - MITRAL VALVE REPAIR [None]
  - DIZZINESS [None]
  - CORONARY ARTERY BYPASS [None]
  - CHEST PAIN [None]
  - HYPOAESTHESIA [None]
  - CARDIAC FAILURE CONGESTIVE [None]
  - RENAL FAILURE ACUTE [None]
